FAERS Safety Report 21015742 (Version 2)
Quarter: 2022Q3

REPORT INFORMATION
  Report Type: Spontaneous
  Country: US (occurrence: US)
  Receive Date: 20220628
  Receipt Date: 20220906
  Transmission Date: 20221027
  Serious: Yes (Death, Hospitalization, Other)
  Sender: FDA-Public Use
  Company Number: US-BRISTOL-MYERS SQUIBB COMPANY-2022-057546

PATIENT
  Age: 78 Year
  Sex: Male

DRUGS (2)
  1. REVLIMID [Suspect]
     Active Substance: LENALIDOMIDE
     Indication: Plasma cell myeloma
     Dosage: 21 DAYS
     Route: 048
     Dates: start: 20220524, end: 202207
  2. DEXAMETHASONE [Concomitant]
     Active Substance: DEXAMETHASONE
     Indication: Product used for unknown indication
     Dosage: D1,8, 15, 22
     Route: 048

REACTIONS (11)
  - Sepsis [Unknown]
  - Acute kidney injury [Unknown]
  - Neutropenia [Unknown]
  - Asthenia [Unknown]
  - Endocarditis [Unknown]
  - Haemorrhagic stroke [Unknown]
  - Plasma cell myeloma [Fatal]
  - Hypocalcaemia [Unknown]
  - Anaemia [Unknown]
  - Streptococcal bacteraemia [Unknown]
  - Condition aggravated [Unknown]

NARRATIVE: CASE EVENT DATE: 20220607
